FAERS Safety Report 9387420 (Version 1)
Quarter: 2013Q3

REPORT INFORMATION
  Report Type: Spontaneous
  Country: US (occurrence: None)
  Receive Date: 20130703
  Receipt Date: 20130703
  Transmission Date: 20140515
  Serious: Yes (Other)
  Sender: FDA-Public Use
  Company Number: None

PATIENT
  Sex: Female
  Weight: 85.73 kg

DRUGS (2)
  1. EFFEXOR XR EXTENDED-RELEASE [Suspect]
     Indication: DEPRESSION
     Route: 048
     Dates: start: 201001
  2. EFFEXOR XR EXTENDED-RELEASE [Suspect]
     Indication: ANXIETY
     Route: 048
     Dates: start: 201001

REACTIONS (1)
  - Drug screen false positive [None]
